FAERS Safety Report 9525345 (Version 1)
Quarter: 2013Q3

REPORT INFORMATION
  Report Type: Spontaneous
  Country: US (occurrence: US)
  Receive Date: 20130916
  Receipt Date: 20130916
  Transmission Date: 20140515
  Serious: Yes (Other)
  Sender: FDA-Public Use
  Company Number: US-AMGEN-USASP2013063580

PATIENT
  Age: 82 Year
  Sex: Female

DRUGS (7)
  1. PROLIA [Suspect]
     Indication: OSTEOPOROSIS POSTMENOPAUSAL
     Dosage: UNK
     Dates: start: 201206
  2. ASPIRIN [Concomitant]
     Dosage: 325 MG, UNK
  3. POTASSIUM CHLORIDE [Concomitant]
     Dosage: 10 MG, QD
  4. LISINOPRIL [Concomitant]
     Dosage: 10 MG, BID
  5. ATORVASTATIN [Concomitant]
     Dosage: 40 MG, QHS
  6. FUROSEMIDE [Concomitant]
     Dosage: 40 MG, QD
  7. VITAMIN D                          /00107901/ [Concomitant]
     Dosage: 1000 MG, QD

REACTIONS (2)
  - Thyroid neoplasm [Unknown]
  - Bone density decreased [Unknown]
